FAERS Safety Report 6035564-8 (Version None)
Quarter: 2009Q1

REPORT INFORMATION
  Report Type: 
  Country: None (occurrence: None)
  Receive Date: 20090112
  Receipt Date: 20090112
  Transmission Date: 20090719
  Serious: Yes (Hospitalization)
  Sender: FDA-Public Use
  Company Number: None

PATIENT
  Age: 70 Year
  Sex: Male
  Weight: 100.3 kg

DRUGS (1)
  1. WARFARIN SODIUM [Suspect]
     Indication: PULMONARY EMBOLISM
     Dosage: MG EVERY DAY PO
     Route: 048
     Dates: end: 20080901

REACTIONS (7)
  - ABDOMINAL PAIN LOWER [None]
  - COUGH [None]
  - HAEMATOMA [None]
  - INCISION SITE PAIN [None]
  - LOCAL SWELLING [None]
  - NASOPHARYNGITIS [None]
  - SNEEZING [None]
